FAERS Safety Report 15751943 (Version 3)
Quarter: 2019Q1

REPORT INFORMATION
  Report Type: Spontaneous
  Country: DE (occurrence: DE)
  Receive Date: 20181221
  Receipt Date: 20190122
  Transmission Date: 20190417
  Serious: Yes (Other)
  Sender: FDA-Public Use
  Company Number: DE-ACCORD-054410

PATIENT
  Age: 65 Year
  Sex: Female

DRUGS (8)
  1. TEMOZOLOMIDE. [Interacting]
     Active Substance: TEMOZOLOMIDE
     Indication: GLIOBLASTOMA MULTIFORME
     Dosage: 200 MG/M2/D/CYCLE FOR SUBSEQUENT CYCLES
     Route: 048
  2. ONDANSETRON [Interacting]
     Active Substance: ONDANSETRON
     Indication: PROPHYLAXIS OF NAUSEA AND VOMITING
     Dosage: DAILY DOSE: 8 MG MILLIGRAM(S) EVERY DAY
  3. VALPROIC ACID. [Interacting]
     Active Substance: VALPROIC ACID
     Indication: PRODUCT USED FOR UNKNOWN INDICATION
  4. CLOBAZAM. [Interacting]
     Active Substance: CLOBAZAM
     Indication: PARTIAL SEIZURES
     Dosage: DAILY DOSE: 5 MG MILLIGRAM(S) EVERY DAY
  5. LEVETIRACETAM. [Suspect]
     Active Substance: LEVETIRACETAM
     Indication: PARTIAL SEIZURES
     Dosage: DAILY DOSE: 1000 MG MILLIGRAM(S) EVERY DAY
  6. LORAZEPAM. [Interacting]
     Active Substance: LORAZEPAM
     Indication: PARTIAL SEIZURES
     Dosage: DAILY DOSE: 1 MG MILLIGRAM(S) EVERY DAY
  7. ARTESUNATE [Interacting]
     Active Substance: ARTESUNATE
     Indication: MALARIA
     Dosage: 200 MG, DAILY
     Route: 048
     Dates: start: 20150920, end: 20151020
  8. VALPROIC ACID. [Interacting]
     Active Substance: VALPROIC ACID
     Indication: GLIOBLASTOMA MULTIFORME

REACTIONS (13)
  - Chest pain [Recovering/Resolving]
  - Blood lactate dehydrogenase increased [Recovered/Resolved]
  - White blood cell count decreased [Recovered/Resolved]
  - Depressed mood [Recovered/Resolved]
  - Dyspepsia [Recovered/Resolved]
  - Monocyte count decreased [Recovered/Resolved]
  - Overdose [Unknown]
  - Leukopenia [Unknown]
  - Intentional product misuse [Unknown]
  - Condition aggravated [Recovered/Resolved]
  - Drug interaction [Unknown]
  - Asthenia [Recovered/Resolved]
  - Hepatotoxicity [Recovered/Resolved]

NARRATIVE: CASE EVENT DATE: 201509
